FAERS Safety Report 8231496-5 (Version None)
Quarter: 2012Q1

REPORT INFORMATION
  Report Type: 
  Country: None (occurrence: None)
  Receive Date: 20120320
  Receipt Date: 20120320
  Transmission Date: 20120608
  Serious: Yes (Death)
  Sender: FDA-Public Use
  Company Number: None

PATIENT
  Age: 69 Year
  Sex: Female

DRUGS (12)
  1. DILANTIN [Concomitant]
  2. COMBIVIR [Concomitant]
  3. KEPPRA [Suspect]
  4. ALPRAZOLAM [Suspect]
  5. FERROUS SULFATE TAB [Concomitant]
  6. MAGNESIUM OXIDE [Concomitant]
  7. ETODOLAC [Concomitant]
  8. KALETRA [Concomitant]
  9. VIMPAT [Suspect]
  10. ARICEPT [Concomitant]
  11. METOPROLOL SUCCINATE [Concomitant]
  12. GRAPE SEED [Concomitant]

REACTIONS (4)
  - BLOOD PRESSURE INCREASED [None]
  - BLOOD PRESSURE INADEQUATELY CONTROLLED [None]
  - ELECTROENCEPHALOGRAM ABNORMAL [None]
  - TOXIC EPIDERMAL NECROLYSIS [None]
